FAERS Safety Report 5528902-3 (Version None)
Quarter: 2007Q4

REPORT INFORMATION
  Report Type: 
  Country: None (occurrence: None)
  Receive Date: 20071129
  Receipt Date: 20071120
  Transmission Date: 20080405
  Serious: Yes (Other)
  Sender: FDA-Public Use
  Company Number: MX-WYE-H01388807

PATIENT
  Age: 14 Year
  Sex: Male

DRUGS (4)
  1. RAPAMUNE [Suspect]
     Indication: IMMUNOSUPPRESSION
     Dosage: UNKNOWN
     Route: 048
  2. MYCOPHENOLATE MOFETIL [Concomitant]
     Indication: IMMUNOSUPPRESSION
     Dosage: UNKNOWN
  3. PREDNISONE TAB [Concomitant]
     Indication: IMMUNOSUPPRESSION
     Dosage: UNKNOWN
  4. INSULIN [Concomitant]
     Indication: HYPOGLYCAEMIA
     Dosage: UNKNOWN

REACTIONS (2)
  - CUTANEOUS VASCULITIS [None]
  - TRANSPLANT REJECTION [None]
